FAERS Safety Report 23938756 (Version 1)
Quarter: 2024Q2

REPORT INFORMATION
  Report Type: Spontaneous
  Country: SA (occurrence: SA)
  Receive Date: 20240604
  Receipt Date: 20240604
  Transmission Date: 20240716
  Serious: Yes (Other)
  Sender: FDA-Public Use
  Company Number: SA-SANDOZ-SDZ2024SA020243

PATIENT
  Age: 48 Year
  Sex: Female

DRUGS (1)
  1. HYRIMOZ [Suspect]
     Active Substance: ADALIMUMAB-ADAZ
     Indication: Rheumatoid arthritis
     Dosage: 40 MG, Q2W (EVERY 14 DAYS)
     Route: 058
     Dates: start: 20231203

REACTIONS (13)
  - Ocular hyperaemia [Not Recovered/Not Resolved]
  - Eye discharge [Not Recovered/Not Resolved]
  - Vision blurred [Not Recovered/Not Resolved]
  - Dry eye [Not Recovered/Not Resolved]
  - Eye infection [Not Recovered/Not Resolved]
  - Skin hyperpigmentation [Not Recovered/Not Resolved]
  - Anxiety [Not Recovered/Not Resolved]
  - Anger [Not Recovered/Not Resolved]
  - Insomnia [Not Recovered/Not Resolved]
  - Alopecia [Not Recovered/Not Resolved]
  - Joint swelling [Not Recovered/Not Resolved]
  - Gait disturbance [Not Recovered/Not Resolved]
  - Inappropriate schedule of product administration [Not Recovered/Not Resolved]

NARRATIVE: CASE EVENT DATE: 20240514
